FAERS Safety Report 8465700-5 (Version None)
Quarter: 2012Q2

REPORT INFORMATION
  Report Type: 
  Country: None (occurrence: None)
  Receive Date: 20120620
  Receipt Date: 20120620
  Transmission Date: 20120825
  Serious: Yes (Life-Threatening, Hospitalization, Disabling)
  Sender: FDA-Public Use
  Company Number: None

PATIENT
  Age: 49 Year
  Sex: Female
  Weight: 63.5036 kg

DRUGS (1)
  1. ABILIFY [Suspect]
     Indication: DEPRESSION
     Dosage: CAN'T REMEMBER 1 PER DAY ORAL
     Route: 048
     Dates: start: 20080301, end: 20090301

REACTIONS (7)
  - AMNESIA [None]
  - MUSCLE SPASTICITY [None]
  - MEMORY IMPAIRMENT [None]
  - BRAIN INJURY [None]
  - BLOOD GLUCOSE INCREASED [None]
  - PAIN [None]
  - ISCHAEMIC STROKE [None]
